FAERS Safety Report 4890088-6 (Version None)
Quarter: 2006Q1

REPORT INFORMATION
  Report Type: 
  Country: None (occurrence: None)
  Receive Date: 20060124
  Receipt Date: 20060111
  Transmission Date: 20060701
  Serious: Yes (Hospitalization)
  Sender: FDA-Public Use
  Company Number: US-GILEAD-2006-0009102

PATIENT
  Sex: Male
  Weight: 66.284 kg

DRUGS (4)
  1. TRUVADA [Suspect]
     Indication: HIV INFECTION
     Route: 048
     Dates: start: 20041208, end: 20050523
  2. SUSTIVA [Concomitant]
     Dates: start: 19990601
  3. IBUPROFEN [Concomitant]
     Indication: MIGRAINE
     Dates: start: 20050510, end: 20050510
  4. WELLBUTRIN [Concomitant]
     Indication: DEPRESSION
     Dates: start: 20040401

REACTIONS (2)
  - HYPOAESTHESIA [None]
  - THROMBOCYTOPENIA [None]
